FAERS Safety Report 20708139 (Version 3)
Quarter: 2022Q2

REPORT INFORMATION
  Report Type: Report from Study
  Country: US (occurrence: US)
  Receive Date: 20220414
  Receipt Date: 20220615
  Transmission Date: 20220720
  Serious: No
  Sender: FDA-Public Use
  Company Number: US-BIOVITRUM-2022US02407

PATIENT
  Age: 83 Year
  Sex: Female

DRUGS (2)
  1. KINERET [Suspect]
     Active Substance: ANAKINRA
     Indication: Still^s disease
     Route: 058
     Dates: start: 20220201
  2. KINERET [Suspect]
     Active Substance: ANAKINRA
     Route: 058

REACTIONS (10)
  - Pain in extremity [Unknown]
  - Petechiae [Unknown]
  - Erythema [Unknown]
  - Hypoaesthesia [Unknown]
  - Loss of personal independence in daily activities [Unknown]
  - Contusion [Recovering/Resolving]
  - Injection site pain [Not Recovered/Not Resolved]
  - Pruritus [Unknown]
  - Injection site reaction [Unknown]
  - Off label use [Unknown]

NARRATIVE: CASE EVENT DATE: 20220201
